FAERS Safety Report 4953310-3 (Version None)
Quarter: 2006Q1

REPORT INFORMATION
  Report Type: 
  Country: None (occurrence: None)
  Receive Date: 20060324
  Receipt Date: 20051114
  Transmission Date: 20060701
  Serious: Yes (Other)
  Sender: FDA-Public Use
  Company Number: PHBS2005MX17078

PATIENT
  Age: 30 Year
  Sex: Female

DRUGS (1)
  1. TRILEPTAL [Suspect]
     Dosage: 3.5 DF/DAY
     Route: 048
     Dates: start: 20041114

REACTIONS (3)
  - CAESAREAN SECTION [None]
  - DRUG EXPOSURE DURING PREGNANCY [None]
  - NORMAL NEWBORN [None]
